FAERS Safety Report 7400275-0 (Version None)
Quarter: 2011Q2

REPORT INFORMATION
  Report Type: 
  Country: None (occurrence: None)
  Receive Date: 20110407
  Receipt Date: 20110328
  Transmission Date: 20111010
  Serious: Yes (Hospitalization)
  Sender: FDA-Public Use
  Company Number: US-ELI_LILLY_AND_COMPANY-US201103008235

PATIENT
  Age: 17 Month

DRUGS (1)
  1. STRATTERA [Suspect]
     Dosage: 40 MG, UNK
     Route: 048
     Dates: start: 20110327, end: 20110327

REACTIONS (1)
  - ACCIDENTAL DRUG INTAKE BY CHILD [None]
